FAERS Safety Report 4458303-0 (Version None)
Quarter: 2004Q3

REPORT INFORMATION
  Report Type: 
  Country: None (occurrence: None)
  Receive Date: 20040917
  Receipt Date: 20040223
  Transmission Date: 20050211
  Serious: Yes (Other)
  Sender: FDA-Public Use
  Company Number: US-JNJFOC-20040104622

PATIENT
  Age: 50 Year
  Sex: Female

DRUGS (3)
  1. TOPAMAX [Suspect]
     Indication: BIPOLAR DISORDER
     Dosage: 150 MG, 2 IN 1 DAY, ORAL
     Route: 048
  2. ZOLOFT [Concomitant]
  3. WELLBUTRIN [Concomitant]

REACTIONS (2)
  - ANGLE CLOSURE GLAUCOMA [None]
  - UNEXPECTED THERAPEUTIC DRUG EFFECT [None]
